FAERS Safety Report 9726827 (Version 1)
Quarter: 2013Q4

REPORT INFORMATION
  Report Type: Spontaneous
  Country: US (occurrence: US)
  Receive Date: 20131203
  Receipt Date: 20131203
  Transmission Date: 20140711
  Serious: No
  Sender: FDA-Public Use
  Company Number: US-NOVEN-13US006559

PATIENT
  Sex: Male

DRUGS (1)
  1. FENTANYL [Suspect]
     Indication: PAIN
     Dosage: 75 UG/HR, QOD
     Route: 062
     Dates: start: 20130313, end: 201303

REACTIONS (9)
  - Application site scab [Not Recovered/Not Resolved]
  - Application site vesicles [Not Recovered/Not Resolved]
  - Application site erythema [Not Recovered/Not Resolved]
  - Drug effect increased [Recovered/Resolved]
  - Product quality issue [Recovered/Resolved]
  - Abnormal behaviour [Recovered/Resolved]
  - Miosis [Recovered/Resolved]
  - Gait disturbance [Recovered/Resolved]
  - Application site burn [Recovered/Resolved]
